FAERS Safety Report 6374734-6 (Version None)
Quarter: 2009Q3

REPORT INFORMATION
  Report Type: 
  Country: None (occurrence: None)
  Receive Date: 20090924
  Receipt Date: 20090913
  Transmission Date: 20100115
  Serious: Yes (Other)
  Sender: FDA-Public Use
  Company Number: PHHY2009MX33598

PATIENT
  Age: 72 Year
  Sex: Female

DRUGS (2)
  1. RASILEZ [Suspect]
     Indication: HYPERTENSION
     Dosage: 1 TABLET (150 MG) DAILY
     Dates: start: 20090616, end: 20090703
  2. ANGIOTENSIN II ANTAGONISTS [Concomitant]
     Indication: HYPERTENSION

REACTIONS (9)
  - CONJUNCTIVAL HYPERAEMIA [None]
  - CONTUSION [None]
  - ERYTHEMA OF EYELID [None]
  - EYELIDS PRURITUS [None]
  - LEFT VENTRICULAR HYPERTROPHY [None]
  - PERIORBITAL OEDEMA [None]
  - SKIN DISCOLOURATION [None]
  - SWELLING [None]
  - URTICARIA [None]
